FAERS Safety Report 10378267 (Version 4)
Quarter: 2014Q3

REPORT INFORMATION
  Report Type: Spontaneous
  Country: CH (occurrence: None)
  Receive Date: 20140807
  Receipt Date: 20140903
  Transmission Date: 20150326
  Serious: Yes (Hospitalization)
  Sender: FDA-Public Use
  Company Number: 2014MPI00923

PATIENT
  Age: 43 Year
  Sex: Male
  Weight: 89 kg

DRUGS (2)
  1. ADCETRIS [Suspect]
     Active Substance: BRENTUXIMAB VEDOTIN
     Indication: HODGKIN^S DISEASE REFRACTORY
     Route: 042
     Dates: start: 20140304, end: 20140721
  2. BENDAMUSTINE [Suspect]
     Active Substance: BENDAMUSTINE
     Indication: HODGKIN^S DISEASE REFRACTORY
     Route: 042
     Dates: start: 20140630, end: 20140721

REACTIONS (20)
  - Hypotension [None]
  - Pyrexia [None]
  - Blood urea increased [None]
  - Glomerular filtration rate decreased [None]
  - Alanine aminotransferase increased [None]
  - Dyspnoea [None]
  - Haematocrit decreased [None]
  - Blood potassium decreased [None]
  - Blood sodium decreased [None]
  - Blood creatinine increased [None]
  - Gamma-glutamyltransferase increased [None]
  - Renal impairment [None]
  - Haemoglobin decreased [None]
  - Aspartate aminotransferase increased [None]
  - Infusion related reaction [None]
  - Platelet count decreased [None]
  - Procalcitonin increased [None]
  - Rash [None]
  - White blood cell count decreased [None]
  - Neutrophil percentage increased [None]

NARRATIVE: CASE EVENT DATE: 20140721
